FAERS Safety Report 6999784-8 (Version None)
Quarter: 2010Q3

REPORT INFORMATION
  Report Type: 
  Country: None (occurrence: None)
  Receive Date: 20100920
  Receipt Date: 20100913
  Transmission Date: 20110219
  Serious: Yes (Hospitalization)
  Sender: FDA-Public Use
  Company Number: US-WYE-H16999510

PATIENT
  Sex: Female
  Weight: 104.42 kg

DRUGS (1)
  1. PREMARIN [Suspect]
     Indication: VULVOVAGINAL DRYNESS
     Dosage: DOSE AND FREQUENCY UNKNOWN
     Route: 067
     Dates: start: 20100726, end: 20100801

REACTIONS (3)
  - CHEST DISCOMFORT [None]
  - PANCREAS INFECTION [None]
  - PANCREATITIS [None]
